FAERS Safety Report 4462112-6 (Version None)
Quarter: 2004Q3

REPORT INFORMATION
  Report Type: 
  Country: None (occurrence: None)
  Receive Date: 20040924
  Receipt Date: 20040924
  Transmission Date: 20050211
  Serious: Yes (Other)
  Sender: FDA-Public Use
  Company Number: None

PATIENT
  Sex: Male
  Weight: 56.6996 kg

DRUGS (1)
  1. CARDIZEM CD [Suspect]
     Dosage: 120 MG 1 PO DAILY
     Route: 048

REACTIONS (1)
  - DIZZINESS [None]
